FAERS Safety Report 15369586 (Version 2)
Quarter: 2018Q4

REPORT INFORMATION
  Report Type: Spontaneous
  Country: US (occurrence: US)
  Receive Date: 20180911
  Receipt Date: 20181003
  Transmission Date: 20190204
  Serious: No
  Sender: FDA-Public Use
  Company Number: US-PFIZER INC-2018366319

PATIENT
  Age: 45 Year
  Sex: Female

DRUGS (1)
  1. LYRICA [Suspect]
     Active Substance: PREGABALIN
     Dosage: UNK

REACTIONS (6)
  - Hypoaesthesia [Unknown]
  - Hyperaesthesia [Unknown]
  - Pain [Unknown]
  - Muscle spasms [Unknown]
  - Skin burning sensation [Unknown]
  - Insomnia [Unknown]
